FAERS Safety Report 21673314 (Version 11)
Quarter: 2023Q1

REPORT INFORMATION
  Report Type: Report from Study
  Country: AU (occurrence: None)
  Receive Date: 20221202
  Receipt Date: 20230320
  Transmission Date: 20230418
  Serious: Yes (Hospitalization)
  Sender: FDA-Public Use
  Company Number: AU-Eisai Medical Research-EC-2022-129062

PATIENT
  Age: 79 Year
  Sex: Male
  Weight: 89 kg

DRUGS (16)
  1. LENVATINIB [Suspect]
     Active Substance: LENVATINIB
     Indication: Malignant melanoma
     Dosage: STARTING DOSE AT 20MG (FLUCTUATED DOSAGE)
     Route: 048
     Dates: start: 20220712, end: 20221122
  2. LENVATINIB [Suspect]
     Active Substance: LENVATINIB
     Route: 048
     Dates: start: 20221123, end: 20221123
  3. QUAVONLIMAB [Suspect]
     Active Substance: QUAVONLIMAB
     Indication: Malignant melanoma
     Dosage: MK-1308A 425MG (QUAVONLIMAB [MK-1308] 25 MG (+) PEMBROLIZUMAB [MK-3475] 400MG)
     Route: 042
     Dates: start: 20220712, end: 20221115
  4. APIXABAN [Concomitant]
     Active Substance: APIXABAN
     Dates: start: 2018
  5. DULOXETINE HYDROCHLORIDE [Concomitant]
     Active Substance: DULOXETINE HYDROCHLORIDE
     Dates: start: 2022
  6. ATORVASTATIN [Concomitant]
     Active Substance: ATORVASTATIN
     Dates: start: 2022
  7. DILTIAZEM [Concomitant]
     Active Substance: DILTIAZEM
     Dates: start: 2018
  8. IBUPROFEN [Concomitant]
     Active Substance: IBUPROFEN
     Dates: start: 2022
  9. CENOVIS B COMPLEX [VITAMINS NOS] [Concomitant]
     Dates: start: 2022
  10. CENOVIS ZINC PLUS [Concomitant]
     Dates: start: 2022
  11. MAGNESIUM [Concomitant]
     Active Substance: MAGNESIUM
     Dates: start: 2022
  12. FLUTICASONE PROPIONATE\FORMOTEROL FUMARATE [Concomitant]
     Active Substance: FLUTICASONE PROPIONATE\FORMOTEROL FUMARATE
     Dates: start: 20190829
  13. SPIRIVA RESPIMAT [Concomitant]
     Active Substance: TIOTROPIUM BROMIDE
     Dates: start: 20190829
  14. LEVOTHYROXINE SODIUM [Concomitant]
     Active Substance: LEVOTHYROXINE SODIUM
     Dates: start: 20220802
  15. PANADOL [Concomitant]
     Active Substance: ACETAMINOPHEN
     Dates: start: 20220809
  16. PEMBROLIZUMAB [Suspect]
     Active Substance: PEMBROLIZUMAB

REACTIONS (1)
  - Colitis [Recovered/Resolved]

NARRATIVE: CASE EVENT DATE: 20221120
